FAERS Safety Report 20709593 (Version 2)
Quarter: 2022Q2

REPORT INFORMATION
  Report Type: Report from Study
  Country: US (occurrence: US)
  Receive Date: 20220414
  Receipt Date: 20220426
  Transmission Date: 20220721
  Serious: Yes (Hospitalization)
  Sender: FDA-Public Use
  Company Number: US-PFIZER INC-202200523366

PATIENT
  Age: 19 Year
  Sex: Male
  Weight: 113.4 kg

DRUGS (6)
  1. METHOTREXATE SODIUM [Suspect]
     Active Substance: METHOTREXATE SODIUM
     Indication: Acute lymphocytic leukaemia
     Dosage: 464 MG, ONCE
     Route: 042
     Dates: start: 20211029, end: 20211029
  2. VINCRISTINE SULFATE [Suspect]
     Active Substance: VINCRISTINE SULFATE
     Indication: Acute lymphocytic leukaemia
     Dosage: 2 MG, ONCE
     Route: 042
     Dates: start: 20211029, end: 20211029
  3. RUXOLITINIB [Suspect]
     Active Substance: RUXOLITINIB
     Indication: Acute lymphocytic leukaemia
     Dosage: 100 MG, 2X/DAY
     Route: 048
     Dates: start: 20211029, end: 20211104
  4. ONDANSETRON [Concomitant]
     Active Substance: ONDANSETRON
     Dosage: UNK
     Dates: start: 20211105
  5. ATIVAN [Concomitant]
     Active Substance: LORAZEPAM
     Dosage: UNK
     Dates: start: 20211105
  6. NALOXONE [Concomitant]
     Active Substance: NALOXONE
     Dosage: UNK
     Dates: start: 20211105

REACTIONS (5)
  - Dehydration [Recovered/Resolved]
  - Stomatitis [Recovered/Resolved]
  - Acute kidney injury [Recovered/Resolved]
  - Febrile neutropenia [Recovered/Resolved]
  - Streptococcal bacteraemia [Recovered/Resolved]

NARRATIVE: CASE EVENT DATE: 20211105
